FAERS Safety Report 6456680-2 (Version None)
Quarter: 2009Q4

REPORT INFORMATION
  Report Type: 
  Country: None (occurrence: None)
  Receive Date: 20091119
  Receipt Date: 20091105
  Transmission Date: 20100525
  Serious: Yes (Hospitalization, Other)
  Sender: FDA-Public Use
  Company Number: 2009AL003932

PATIENT
  Age: 36 Year
  Sex: Female

DRUGS (14)
  1. DIAZEPAM TAB [Suspect]
     Dosage: PRN
  2. LACTULOSE [Suspect]
     Dosage: 10 ML;PRN
  3. FERROUS SULFATE DROPS (ALPHARMA) (FERROUS SULFATE DROPS (ALPHARMA)) [Suspect]
     Dosage: 200 MG;BID;PO
     Route: 048
  4. PERINDOPRIL [Concomitant]
  5. CLOZARIL [Concomitant]
  6. LANSOPRAZOLE [Concomitant]
  7. FOLIC ACID [Concomitant]
  8. TRIMETHOPRIM [Concomitant]
  9. ZOPICLONE [Concomitant]
  10. FUROSEMIDE [Concomitant]
  11. RAMIPRIL [Concomitant]
  12. ATORVASTATIN [Concomitant]
  13. BENDROFLUMETHIAZIDE [Concomitant]
  14. ARIPIPRAZOLE [Concomitant]

REACTIONS (1)
  - UNEVALUABLE EVENT [None]
